FAERS Safety Report 8026323-5 (Version None)
Quarter: 2012Q1

REPORT INFORMATION
  Report Type: 
  Country: None (occurrence: None)
  Receive Date: 20120105
  Receipt Date: 20111220
  Transmission Date: 20120608
  Serious: No
  Sender: FDA-Public Use
  Company Number: US-ABBOTT-11P-163-0885982-00

PATIENT
  Sex: Female
  Weight: 44.492 kg

DRUGS (9)
  1. SYNTHROID [Suspect]
     Indication: PRODUCT USED FOR UNKNOWN INDICATION
  2. ASPIRIN [Suspect]
     Indication: PRODUCT USED FOR UNKNOWN INDICATION
  3. ZOCAAR [Suspect]
     Indication: PRODUCT USED FOR UNKNOWN INDICATION
  4. PEPCID [Suspect]
     Indication: PRODUCT USED FOR UNKNOWN INDICATION
  5. POTASSIUM CHLORIDE [Suspect]
     Indication: PRODUCT USED FOR UNKNOWN INDICATION
  6. VITAMIN B-12 [Suspect]
     Indication: PRODUCT USED FOR UNKNOWN INDICATION
  7. PLAVIX [Suspect]
     Indication: PRODUCT USED FOR UNKNOWN INDICATION
  8. TASIGNA [Concomitant]
     Indication: LEUKAEMIA IN REMISSION
  9. VITAMIN D [Suspect]
     Indication: PRODUCT USED FOR UNKNOWN INDICATION

REACTIONS (5)
  - FALL [None]
  - WHITE BLOOD CELL COUNT INCREASED [None]
  - DYSPNOEA [None]
  - ASTHENIA [None]
  - DECREASED APPETITE [None]
